FAERS Safety Report 13702539 (Version 2)
Quarter: 2017Q3

REPORT INFORMATION
  Report Type: Report from Study
  Country: KR (occurrence: KR)
  Receive Date: 20170629
  Receipt Date: 20170707
  Transmission Date: 20171127
  Serious: Yes (Hospitalization)
  Sender: FDA-Public Use
  Company Number: PHHO2017KR009441

PATIENT
  Age: 85 Year
  Sex: Female
  Weight: 53 kg

DRUGS (12)
  1. MACPERAN [Concomitant]
     Active Substance: METOCLOPRAMIDE HYDROCHLORIDE
     Indication: PROPHYLAXIS
     Dosage: 2 ML, PRN
     Route: 042
     Dates: start: 20170615, end: 20170615
  2. BEECOM HEXA [Concomitant]
     Indication: PROPHYLAXIS
     Dosage: 2 ML, CONTINUOUS INFUSION
     Route: 042
     Dates: start: 20170609, end: 20170613
  3. COMBIFLEX LIPID CENTRAL [Concomitant]
     Indication: PROPHYLAXIS
     Dosage: 1440 ML, CONTINUOUS INFUSION
     Route: 042
     Dates: start: 20170609
  4. LORAVAN [Concomitant]
     Active Substance: LORAZEPAM
     Indication: SLEEP DISORDER
     Dosage: 0.5 MG, QD
     Route: 048
     Dates: start: 20170609
  5. FAMOTIDINE. [Concomitant]
     Active Substance: FAMOTIDINE
     Indication: PROPHYLAXIS
     Dosage: 20 MG, BID
     Route: 048
     Dates: start: 20170609
  6. THIAMINE. [Concomitant]
     Active Substance: THIAMINE
     Indication: PROPHYLAXIS
     Dosage: 10 MG, Q8H
     Route: 048
     Dates: start: 20170614
  7. SODIUM CHLORIDE. [Concomitant]
     Active Substance: SODIUM CHLORIDE
     Indication: PROPHYLAXIS
     Dosage: 20 ML, CONTINUOUS INFUSION
     Route: 042
     Dates: start: 20170609, end: 20170613
  8. TRESTAN [Concomitant]
     Active Substance: LYSINE HYDROCHLORIDE
     Indication: DECREASED APPETITE
     Dosage: 1 DF, Q8H
     Route: 048
     Dates: start: 20170609
  9. DEXTROSE. [Concomitant]
     Active Substance: DEXTROSE
     Indication: PROPHYLAXIS
     Dosage: 1000 ML, CONTINUOUS INFUSION
     Route: 042
     Dates: start: 20170609, end: 20170613
  10. TRAMETINIB [Suspect]
     Active Substance: TRAMETINIB
     Indication: ANAPLASTIC THYROID CANCER
     Dosage: UNK
     Route: 048
     Dates: start: 20170113
  11. DABRAFENIB [Suspect]
     Active Substance: DABRAFENIB
     Indication: ANAPLASTIC THYROID CANCER
     Dosage: UNK
     Route: 048
     Dates: start: 20170113
  12. DEXTROSE. [Concomitant]
     Active Substance: DEXTROSE
     Dosage: 500 ML, CONTINUOUS INFUSION
     Route: 042
     Dates: start: 20170614

REACTIONS (2)
  - Pneumonia [Recovering/Resolving]
  - Pleural effusion [Recovering/Resolving]

NARRATIVE: CASE EVENT DATE: 20170613
